FAERS Safety Report 25680173 (Version 1)
Quarter: 2025Q3

REPORT INFORMATION
  Report Type: Spontaneous
  Country: US (occurrence: US)
  Receive Date: 20250814
  Receipt Date: 20250814
  Transmission Date: 20251020
  Serious: No
  Sender: Kenvue
  Company Number: US-KENVUE-20250708568

PATIENT

DRUGS (8)
  1. PEPCID [Suspect]
     Active Substance: FAMOTIDINE
     Indication: Mast cell activation syndrome
     Dosage: 2 DOSAGE FORM, TWICE A DAY (2 AT NIGHT AND IN THE MORNING, FOR A TOTAL OF 4 A DAY)
     Route: 065
  2. MONTELUKAST [Concomitant]
     Active Substance: MONTELUKAST
     Indication: Mast cell activation syndrome
     Dosage: 1 DOSAGE FORM, ONCE A DAY (ONE PILL AT NIGHT)
     Route: 065
  3. ALLEGRA [Concomitant]
     Active Substance: FEXOFENADINE HYDROCHLORIDE
     Indication: Mast cell activation syndrome
     Dosage: 2 DOSAGE FORM, TWICE A DAY (2 ALLEGRA^S AT NIGHT AND IN THE MORNING, FOR A TOTAL OF 4 A DAY)
     Route: 065
  4. VITAMIN C [Concomitant]
     Active Substance: ASCORBIC ACID
     Indication: Product used for unknown indication
     Route: 065
  5. QUERCETIN [Concomitant]
     Active Substance: QUERCETIN
     Indication: Product used for unknown indication
     Route: 065
  6. Histamine X [Concomitant]
     Indication: Product used for unknown indication
     Route: 065
  7. DAO Enzymes [Concomitant]
     Indication: Product used for unknown indication
     Route: 065
  8. NALTREXONE [Concomitant]
     Active Substance: NALTREXONE
     Indication: Product used for unknown indication
     Route: 065
     Dates: start: 202405

REACTIONS (2)
  - Prescribed overdose [Unknown]
  - Off label use [Unknown]
